FAERS Safety Report 8962907 (Version 1)
Quarter: 2012Q4

REPORT INFORMATION
  Report Type: 
  Country: US (occurrence: US)
  Receive Date: 20121213
  Receipt Date: 20121213
  Transmission Date: 20130627
  Serious: Yes (Congenital Anomaly, Other)
  Sender: FDA-Public Use
  Company Number: US-PFIZER INC-2012311750

PATIENT
  Sex: Female

DRUGS (1)
  1. EFFEXOR XR [Suspect]
     Dosage: 150 mg, UNK
     Route: 064
     Dates: start: 20090102, end: 200909

REACTIONS (4)
  - Maternal exposure timing unspecified [Unknown]
  - Univentricular heart [Recovering/Resolving]
  - Congenital heart valve disorder [Recovering/Resolving]
  - Aorta hypoplasia [Recovering/Resolving]
